FAERS Safety Report 8397820-8 (Version None)
Quarter: 2012Q2

REPORT INFORMATION
  Report Type: 
  Country: None (occurrence: None)
  Receive Date: 20120531
  Receipt Date: 20120516
  Transmission Date: 20120825
  Serious: Yes (Hospitalization)
  Sender: FDA-Public Use
  Company Number: US-SHIRE-ALL1-2012-02665

PATIENT
  Sex: Female
  Weight: 61.678 kg

DRUGS (9)
  1. VYVANSE [Suspect]
     Indication: ATTENTION DEFICIT/HYPERACTIVITY DISORDER
     Dosage: 60 MG, 1X/DAY:QD
     Route: 048
     Dates: start: 20110201, end: 20110301
  2. VYVANSE [Suspect]
     Dosage: 50 MG, 1X/DAY:QD
     Route: 048
     Dates: start: 20110301, end: 20110401
  3. VYVANSE [Suspect]
     Dosage: 40 MG, 1X/DAY:QD
     Route: 048
     Dates: start: 20120301, end: 20120401
  4. TRAZODONE HCL [Concomitant]
     Indication: SLEEP DISORDER
     Dosage: 150 MG, 1X/DAY:QD AT NIGHT
     Route: 048
     Dates: start: 20020101
  5. VYVANSE [Suspect]
     Dosage: 40 MG, 1X/DAY:QD
     Route: 048
     Dates: start: 20110401, end: 20110501
  6. CELEXA [Concomitant]
     Indication: DEPRESSION
     Dosage: 20 MG, 1X/DAY:QD AT NIGHT
     Route: 048
     Dates: start: 20020101
  7. METFORMIN HCL [Concomitant]
     Indication: INSULIN RESISTANCE
     Dosage: 500 MG, 2X/DAY:BID
     Route: 048
     Dates: start: 20090101
  8. VYVANSE [Suspect]
     Dosage: 30 MG, 1X/DAY:QD
     Route: 048
     Dates: start: 20110501, end: 20120301
  9. VYVANSE [Suspect]
     Dosage: 30 MG, 1X/DAY:QD
     Route: 048
     Dates: start: 20120401, end: 20120401

REACTIONS (6)
  - URINARY TRACT INFECTION [None]
  - HEADACHE [None]
  - FATIGUE [None]
  - OEDEMA PERIPHERAL [None]
  - NEPHROLITHIASIS [None]
  - PAIN [None]
